FAERS Safety Report 9050394 (Version 1)
Quarter: 2013Q1

REPORT INFORMATION
  Report Type: Spontaneous
  Country: US (occurrence: US)
  Receive Date: 20130205
  Receipt Date: 20130205
  Transmission Date: 20140127
  Serious: Yes (Other)
  Sender: FDA-Public Use
  Company Number: US-PFIZER INC-2013044301

PATIENT
  Sex: Female

DRUGS (4)
  1. MORPHINE SULFATE [Suspect]
     Dosage: UNK
     Route: 065
  2. HYDROMORPHONE HYDROCHLORIDE [Suspect]
     Indication: SICKLE CELL ANAEMIA
     Dosage: 60 MG, UNK
     Route: 065
  3. HYDROMORPHONE HYDROCHLORIDE [Suspect]
     Indication: BONE INFARCTION
     Dosage: 80 MG, UNK
     Route: 065
  4. HYDROMORPHONE HYDROCHLORIDE [Suspect]
     Dosage: 100 MG, DAILY
     Route: 048

REACTIONS (1)
  - Drug abuse [Not Recovered/Not Resolved]
